FAERS Safety Report 17878482 (Version 2)
Quarter: 2020Q3

REPORT INFORMATION
  Report Type: Spontaneous
  Country: US (occurrence: US)
  Receive Date: 20200610
  Receipt Date: 20200708
  Transmission Date: 20201103
  Serious: No
  Sender: FDA-Public Use
  Company Number: US-HTU-2020US020484

PATIENT
  Sex: Male

DRUGS (1)
  1. VALCHLOR [Suspect]
     Active Substance: MECHLORETHAMINE
     Indication: CUTANEOUS T-CELL LYMPHOMA
     Dosage: UNK, 3/WEEK
     Route: 061

REACTIONS (7)
  - Intentional product use issue [Unknown]
  - Off label use [Unknown]
  - Application site erythema [Unknown]
  - Application site pruritus [Recovering/Resolving]
  - Application site dryness [Unknown]
  - Sleep disorder due to a general medical condition [Recovering/Resolving]
  - Application site erosion [Unknown]
